FAERS Safety Report 20738972 (Version 1)
Quarter: 2022Q2

REPORT INFORMATION
  Report Type: Spontaneous
  Country: US (occurrence: US)
  Receive Date: 20220422
  Receipt Date: 20220422
  Transmission Date: 20220721
  Serious: Yes (Hospitalization, Other)
  Sender: FDA-Public Use
  Company Number: US-BRISTOL-MYERS SQUIBB COMPANY-2022-022601

PATIENT
  Age: 62 Year
  Sex: Female
  Weight: 150.59 kg

DRUGS (2)
  1. ELIQUIS [Suspect]
     Active Substance: APIXABAN
     Indication: Atrial fibrillation
     Dosage: DOSE : UNAVAILABLE;     FREQ : TWICE A DAY
     Route: 065
     Dates: start: 20220328
  2. DILTIAZEM [Concomitant]
     Active Substance: DILTIAZEM
     Indication: Atrial fibrillation

REACTIONS (5)
  - Atrial fibrillation [Unknown]
  - Feeling abnormal [Unknown]
  - Hot flush [Unknown]
  - Peripheral swelling [Unknown]
  - Heart rate decreased [Unknown]
